FAERS Safety Report 9795614 (Version 4)
Quarter: 2014Q2

REPORT INFORMATION
  Report Type: Spontaneous
  Country: US (occurrence: US)
  Receive Date: 20140103
  Receipt Date: 20140610
  Transmission Date: 20141212
  Serious: No
  Sender: FDA-Public Use
  Company Number: US-PFIZER INC-2014000677

PATIENT
  Age: 61 Year
  Sex: Female
  Weight: 99.77 kg

DRUGS (3)
  1. LYRICA [Suspect]
     Indication: FIBROMYALGIA
     Dosage: 75MG 6 TIMES A DAY
  2. LYRICA [Suspect]
     Dosage: 220 MG, 2X/DAY
  3. LYRICA [Suspect]
     Dosage: 225 MG, BID
     Route: 048

REACTIONS (1)
  - Pain [Unknown]
